FAERS Safety Report 21104109 (Version 3)
Quarter: 2022Q3

REPORT INFORMATION
  Report Type: Spontaneous
  Country: US (occurrence: US)
  Receive Date: 20220720
  Receipt Date: 20220824
  Transmission Date: 20221026
  Serious: No
  Sender: FDA-Public Use
  Company Number: US-009507513-2207USA002692

PATIENT
  Sex: Female

DRUGS (1)
  1. MOLNUPIRAVIR [Suspect]
     Active Substance: MOLNUPIRAVIR
     Dosage: UNK, FOUR TIMES A DAY
     Route: 048
     Dates: start: 20220629, end: 20220703

REACTIONS (2)
  - Dysphonia [Unknown]
  - Product use issue [Unknown]

NARRATIVE: CASE EVENT DATE: 20220629
